FAERS Safety Report 11813991 (Version 3)
Quarter: 2016Q1

REPORT INFORMATION
  Report Type: Report from Study
  Country: US (occurrence: US)
  Receive Date: 20151209
  Receipt Date: 20160322
  Transmission Date: 20160525
  Serious: Yes (Other)
  Sender: FDA-Public Use
  Company Number: US-AMGEN-USASL2015130077

PATIENT
  Age: 73 Year
  Sex: Male

DRUGS (3)
  1. DEXAMETHASONE. [Concomitant]
     Active Substance: DEXAMETHASONE
     Dosage: 20 MG, UNK
  2. REVLIMID [Concomitant]
     Active Substance: LENALIDOMIDE
     Dosage: 15 MG, UNK
  3. KYPROLIS [Suspect]
     Active Substance: CARFILZOMIB
     Indication: PLASMA CELL MYELOMA
     Dosage: 59 MG, 2 TIMES/WK, TWICE A WEEK FOR 3 WEEKS ON AND ONE WEEK OFF
     Route: 065
     Dates: start: 201510

REACTIONS (10)
  - Immunosuppression [Unknown]
  - Cystitis [Unknown]
  - Compartment syndrome [Unknown]
  - Gastroenteritis viral [Unknown]
  - Skin cancer [Unknown]
  - Dizziness [Unknown]
  - Infection [Unknown]
  - Localised infection [Unknown]
  - Impaired healing [Unknown]
  - Fatigue [Unknown]

NARRATIVE: CASE EVENT DATE: 20151120
